FAERS Safety Report 12328225 (Version 1)
Quarter: 2016Q2

REPORT INFORMATION
  Report Type: Spontaneous
  Country: US (occurrence: US)
  Receive Date: 20160503
  Receipt Date: 20160503
  Transmission Date: 20160815
  Serious: Yes (Hospitalization, Other)
  Sender: FDA-Public Use
  Company Number: ADR-2015-01647

PATIENT
  Age: 54 Year
  Sex: Female

DRUGS (5)
  1. BUPIVACAINE. [Suspect]
     Active Substance: BUPIVACAINE
     Route: 037
  2. MORPHINE [Suspect]
     Active Substance: MORPHINE
     Route: 037
  3. CLONIDINE. [Suspect]
     Active Substance: CLONIDINE
     Route: 037
  4. BACLOFEN. [Suspect]
     Active Substance: BACLOFEN
     Route: 037
  5. FENTANYL. [Suspect]
     Active Substance: FENTANYL
     Route: 037

REACTIONS (5)
  - Drug dependence [Unknown]
  - Pain in extremity [Unknown]
  - Pain [Unknown]
  - Back pain [Unknown]
  - Cellulitis [Unknown]
